FAERS Safety Report 10866539 (Version 1)
Quarter: 2015Q1

REPORT INFORMATION
  Report Type: Spontaneous
  Country: US (occurrence: None)
  Receive Date: 20150220
  Receipt Date: 20150220
  Transmission Date: 20150721
  Serious: Yes (Death)
  Sender: FDA-Public Use
  Company Number: 201502074

PATIENT
  Age: 46 Year
  Sex: Male

DRUGS (2)
  1. ANDROGEL [Suspect]
     Active Substance: TESTOSTERONE
     Indication: BLOOD TESTOSTERONE DECREASED
     Dates: start: 201304, end: 20130410
  2. TESTIM [Suspect]
     Active Substance: TESTOSTERONE
     Indication: BLOOD TESTOSTERONE DECREASED
     Route: 062
     Dates: start: 201303, end: 20130410

REACTIONS (6)
  - Pain [None]
  - Anhedonia [None]
  - Sexual relationship change [None]
  - Myocardial infarction [None]
  - Economic problem [None]
  - Sudden cardiac death [None]

NARRATIVE: CASE EVENT DATE: 20130410
